FAERS Safety Report 24334703 (Version 1)
Quarter: 2024Q3

REPORT INFORMATION
  Report Type: Spontaneous
  Country: IL (occurrence: IL)
  Receive Date: 20240918
  Receipt Date: 20240918
  Transmission Date: 20241016
  Serious: Yes (Other)
  Sender: SAREPTA THERAPEUTICS
  Company Number: IL-SAREPTA THERAPEUTICS INC.-SRP2024-005069

PATIENT

DRUGS (1)
  1. EXONDYS 51 [Suspect]
     Active Substance: ETEPLIRSEN
     Indication: Duchenne muscular dystrophy
     Dosage: 1410 MILLIGRAM, WEEKLY

REACTIONS (2)
  - Cardiac failure [Unknown]
  - Asthenia [Unknown]
